FAERS Safety Report 21252375 (Version 3)
Quarter: 2022Q3

REPORT INFORMATION
  Report Type: Spontaneous
  Country: AU (occurrence: AU)
  Receive Date: 20220825
  Receipt Date: 20220902
  Transmission Date: 20221027
  Serious: Yes (Other)
  Sender: FDA-Public Use
  Company Number: AU-NOVARTISPH-NVSC2022AU190041

PATIENT
  Age: 29 Year
  Sex: Female

DRUGS (1)
  1. VOTRIENT [Suspect]
     Active Substance: PAZOPANIB HYDROCHLORIDE
     Indication: Phyllodes tumour
     Dosage: UNK
     Route: 065

REACTIONS (2)
  - Phyllodes tumour [Unknown]
  - Malignant neoplasm progression [Unknown]
